FAERS Safety Report 20601649 (Version 1)
Quarter: 2022Q1

REPORT INFORMATION
  Report Type: Spontaneous
  Country: US (occurrence: None)
  Receive Date: 20220315
  Receipt Date: 20220315
  Transmission Date: 20220423
  Serious: Yes (Death, Hospitalization, Other)
  Sender: FDA-Public Use
  Company Number: None

PATIENT
  Age: 49 Year
  Sex: Female
  Weight: 62.1 kg

DRUGS (9)
  1. BELATACEPT [Suspect]
     Active Substance: BELATACEPT
     Indication: Lung transplant
     Dosage: OTHER FREQUENCY : Q28 DAYS;?
     Route: 041
     Dates: start: 20201016, end: 20210108
  2. BELATACEPT [Suspect]
     Active Substance: BELATACEPT
     Indication: Lung transplant
     Dosage: OTHER FREQUENCY : Q 28 DAYS;?
     Route: 041
     Dates: start: 20210205, end: 20210205
  3. Mycophenolate 1000mg BID [Concomitant]
  4. TACROLIMUS [Concomitant]
     Active Substance: TACROLIMUS
  5. PREDNISONE [Concomitant]
     Active Substance: PREDNISONE
  6. REMDESIVIR [Concomitant]
     Active Substance: REMDESIVIR
  7. dexamethosone [Concomitant]
  8. CEFEPIME [Concomitant]
     Active Substance: CEFEPIME HYDROCHLORIDE
  9. VANCOMYCIN [Concomitant]
     Active Substance: VANCOMYCIN

REACTIONS (3)
  - Respiratory failure [None]
  - COVID-19 [None]
  - Transplant dysfunction [None]

NARRATIVE: CASE EVENT DATE: 20211021
